FAERS Safety Report 8866510 (Version 4)
Quarter: 2013Q2

REPORT INFORMATION
  Report Type: Report from Study
  Country: US (occurrence: US)
  Receive Date: 20121025
  Receipt Date: 20130405
  Transmission Date: 20140414
  Serious: Yes (Hospitalization, Other)
  Sender: FDA-Public Use
  Company Number: US-PURDUE-USA-2012-0094563

PATIENT
  Age: 74 Year
  Sex: Female

DRUGS (2)
  1. OXYCONTIN (NDA 22-272) [Suspect]
     Indication: PRODUCT USED FOR UNKNOWN INDICATION
     Dosage: 40 MG, TID
     Route: 048
  2. INSULIN [Concomitant]
     Indication: DIABETES MELLITUS

REACTIONS (15)
  - Pulmonary embolism [Unknown]
  - Thrombosis [Recovered/Resolved]
  - Basal cell carcinoma [Not Recovered/Not Resolved]
  - Carbon monoxide poisoning [Recovered/Resolved]
  - Unevaluable event [Recovered/Resolved]
  - Hypersomnia [Unknown]
  - Nausea [Unknown]
  - Headache [Unknown]
  - Fatigue [Unknown]
  - Anxiety [Not Recovered/Not Resolved]
  - Bone disorder [Unknown]
  - Osteoporosis [Unknown]
  - Feeling abnormal [Unknown]
  - Pain [Unknown]
  - Nerve injury [Unknown]
